FAERS Safety Report 9849191 (Version 1)
Quarter: 2014Q1

REPORT INFORMATION
  Report Type: Spontaneous
  Country: US (occurrence: US)
  Receive Date: 20140128
  Receipt Date: 20140128
  Transmission Date: 20141002
  Serious: No
  Sender: FDA-Public Use
  Company Number: US-ABBVIE-13P-163-1175197-00

PATIENT
  Sex: 0

DRUGS (1)
  1. LUPRON DEPOT [Suspect]
     Indication: PRODUCT USED FOR UNKNOWN INDICATION
     Dates: start: 20081029, end: 200908

REACTIONS (9)
  - Crying [Unknown]
  - Headache [Unknown]
  - Weight increased [Unknown]
  - Hair disorder [Unknown]
  - Hot flush [Unknown]
  - Libido decreased [Unknown]
  - Mood swings [Unknown]
  - Aggression [Unknown]
  - Anger [Unknown]
